FAERS Safety Report 6482982-X (Version None)
Quarter: 2009Q4

REPORT INFORMATION
  Report Type: 
  Country: None (occurrence: None)
  Receive Date: 20091209
  Receipt Date: 20091030
  Transmission Date: 20100525
  Serious: No
  Sender: FDA-Public Use
  Company Number: US-AMGEN-KDL372270

PATIENT
  Sex: Female

DRUGS (2)
  1. ENBREL [Suspect]
     Indication: RHEUMATOID ARTHRITIS
     Route: 058
     Dates: start: 20080730
  2. PLAQUENIL [Concomitant]
     Dates: start: 20090401

REACTIONS (8)
  - DRY SKIN [None]
  - INJECTION SITE EXTRAVASATION [None]
  - INJECTION SITE HAEMORRHAGE [None]
  - INJECTION SITE PRURITUS [None]
  - SKIN EXFOLIATION [None]
  - TINNITUS [None]
  - VAGINAL INFECTION [None]
  - VULVOVAGINAL PRURITUS [None]
